FAERS Safety Report 4882017-6 (Version None)
Quarter: 2006Q1

REPORT INFORMATION
  Report Type: 
  Country: None (occurrence: None)
  Receive Date: 20060117
  Receipt Date: 20050712
  Transmission Date: 20060701
  Serious: Yes (Hospitalization)
  Sender: FDA-Public Use
  Company Number: 200512481FR

PATIENT
  Age: 60 Year
  Sex: Female

DRUGS (6)
  1. RILUTEK [Suspect]
     Indication: AMYOTROPHIC LATERAL SCLEROSIS
     Dates: start: 20050416, end: 20050510
  2. RILUTEK [Suspect]
     Dates: start: 20051001
  3. PROZAC [Concomitant]
  4. PREVISCAN [Concomitant]
     Dates: end: 20051101
  5. OESTRODOSE [Concomitant]
  6. TENORMIN [Concomitant]
     Indication: HYPERTENSION

REACTIONS (9)
  - ARTHRALGIA [None]
  - CYTOLYTIC HEPATITIS [None]
  - INFLAMMATION [None]
  - MYALGIA [None]
  - PULMONARY EMBOLISM [None]
  - PYREXIA [None]
  - SHOULDER PAIN [None]
  - TENDON CALCIFICATION [None]
  - VIRAL INFECTION [None]
